FAERS Safety Report 6925912-6 (Version None)
Quarter: 2010Q3

REPORT INFORMATION
  Report Type: 
  Country: None (occurrence: None)
  Receive Date: 20100816
  Receipt Date: 20100803
  Transmission Date: 20110219
  Serious: Yes (Hospitalization)
  Sender: FDA-Public Use
  Company Number: PHFR2010GB01963

PATIENT
  Age: 83 Year
  Sex: Female

DRUGS (10)
  1. DICLOFENAC [Suspect]
     Dosage: UNK
     Route: 048
     Dates: start: 20100720, end: 20100724
  2. ASPIRIN [Suspect]
     Dosage: UNK
     Route: 048
     Dates: start: 19980101, end: 20100723
  3. DABIGATRAN ETEXILATE [Suspect]
     Dosage: UNK
     Route: 048
     Dates: start: 20100723
  4. AMLODIPINE [Concomitant]
  5. DOSULEPIN [Concomitant]
  6. FLUPENTIXOL [Concomitant]
  7. LISINOPRIL [Concomitant]
  8. OXYCODONE [Concomitant]
  9. ACETAMINOPHEN [Concomitant]
  10. QUININE SULFATE [Concomitant]

REACTIONS (6)
  - BLEEDING TIME PROLONGED [None]
  - FALL [None]
  - INTERNATIONAL NORMALISED RATIO INCREASED [None]
  - KNEE ARTHROPLASTY [None]
  - RECTAL HAEMORRHAGE [None]
  - WOUND [None]
